FAERS Safety Report 25268007 (Version 1)
Quarter: 2025Q2

REPORT INFORMATION
  Report Type: Spontaneous
  Country: FR (occurrence: FR)
  Receive Date: 20250505
  Receipt Date: 20250505
  Transmission Date: 20250717
  Serious: Yes (Hospitalization)
  Sender: MYLAN
  Company Number: FR-MYLANLABS-2025M1037887

PATIENT
  Age: 75 Year
  Sex: Male

DRUGS (16)
  1. METHOTREXATE [Suspect]
     Active Substance: METHOTREXATE
     Indication: Erythrodermic psoriasis
  2. METHOTREXATE [Suspect]
     Active Substance: METHOTREXATE
     Route: 065
  3. METHOTREXATE [Suspect]
     Active Substance: METHOTREXATE
     Route: 065
  4. METHOTREXATE [Suspect]
     Active Substance: METHOTREXATE
  5. ADALIMUMAB [Suspect]
     Active Substance: ADALIMUMAB
     Indication: Erythrodermic psoriasis
  6. ADALIMUMAB [Suspect]
     Active Substance: ADALIMUMAB
     Route: 065
  7. ADALIMUMAB [Suspect]
     Active Substance: ADALIMUMAB
     Route: 065
  8. ADALIMUMAB [Suspect]
     Active Substance: ADALIMUMAB
  9. USTEKINUMAB [Suspect]
     Active Substance: USTEKINUMAB
     Indication: Erythrodermic psoriasis
  10. USTEKINUMAB [Suspect]
     Active Substance: USTEKINUMAB
     Route: 065
  11. USTEKINUMAB [Suspect]
     Active Substance: USTEKINUMAB
     Route: 065
  12. USTEKINUMAB [Suspect]
     Active Substance: USTEKINUMAB
  13. SALICYLIC ACID [Concomitant]
     Active Substance: SALICYLIC ACID
     Indication: Erythrodermic psoriasis
  14. SALICYLIC ACID [Concomitant]
     Active Substance: SALICYLIC ACID
     Route: 061
  15. SALICYLIC ACID [Concomitant]
     Active Substance: SALICYLIC ACID
     Route: 061
  16. SALICYLIC ACID [Concomitant]
     Active Substance: SALICYLIC ACID

REACTIONS (1)
  - Drug ineffective [Unknown]
